FAERS Safety Report 16091598 (Version 1)
Quarter: 2019Q1

REPORT INFORMATION
  Report Type: Report from Study
  Country: US (occurrence: US)
  Receive Date: 20190319
  Receipt Date: 20190319
  Transmission Date: 20190418
  Serious: No
  Sender: FDA-Public Use
  Company Number: US-REGENERON PHARMACEUTICALS, INC.-2018-28409

PATIENT

DRUGS (1)
  1. RILONACEPT [Suspect]
     Active Substance: RILONACEPT
     Indication: MONOCLONAL GAMMOPATHY
     Dosage: 160 MG, WEEKLY
     Route: 058
     Dates: start: 20180608

REACTIONS (1)
  - Injection site inflammation [Unknown]
